FAERS Safety Report 24007867 (Version 1)
Quarter: 2024Q2

REPORT INFORMATION
  Report Type: Spontaneous
  Country: GB (occurrence: GB)
  Receive Date: 20240625
  Receipt Date: 20240625
  Transmission Date: 20240716
  Serious: Yes (Hospitalization, Other)
  Sender: FDA-Public Use
  Company Number: GB-MHRA-MED-202406141237135110-KLWHZ

PATIENT
  Age: 70 Year
  Sex: Female

DRUGS (1)
  1. ACETAMINOPHEN [Suspect]
     Active Substance: ACETAMINOPHEN
     Indication: Adverse drug reaction
     Dosage: 1.5 MILLILITER
     Route: 065

REACTIONS (3)
  - Chest discomfort [Unknown]
  - Skin infection [Unknown]
  - Swelling [Unknown]

NARRATIVE: CASE EVENT DATE: 20240613
